FAERS Safety Report 9498205 (Version 1)
Quarter: 2013Q3

REPORT INFORMATION
  Report Type: Spontaneous
  Country: US (occurrence: US)
  Receive Date: 20130904
  Receipt Date: 20130904
  Transmission Date: 20140515
  Serious: Yes (Other)
  Sender: FDA-Public Use
  Company Number: US-ELI_LILLY_AND_COMPANY-US201308007753

PATIENT
  Age: 46 Year
  Sex: Male

DRUGS (2)
  1. AXIRON [Suspect]
     Indication: BLOOD TESTOSTERONE DECREASED
     Dosage: 60MG/DAILY
  2. OTHER LIPID MODIFYING AGENTS [Suspect]

REACTIONS (1)
  - Rhabdomyolysis [Recovered/Resolved]
